FAERS Safety Report 5093128-7 (Version None)
Quarter: 2006Q3

REPORT INFORMATION
  Report Type: 
  Country: None (occurrence: None)
  Receive Date: 20060830
  Receipt Date: 20060608
  Transmission Date: 20061208
  Serious: Yes (Life-Threatening, Hospitalization)
  Sender: FDA-Public Use
  Company Number: CN-ROCHE-451088

PATIENT
  Age: 27 Year
  Sex: Female
  Weight: 52 kg

DRUGS (2)
  1. MYCOPHENOLATE MOFETIL [Suspect]
     Indication: LUPUS NEPHRITIS
     Route: 048
     Dates: start: 20060411, end: 20060603
  2. CORTICOSTEROID NOS [Suspect]
     Indication: LUPUS NEPHRITIS
     Route: 065

REACTIONS (7)
  - CANDIDIASIS [None]
  - COMA [None]
  - DYSPHONIA [None]
  - HERPES OPHTHALMIC [None]
  - MENINGITIS TUBERCULOUS [None]
  - OVERDOSE [None]
  - SINUSITIS [None]
